FAERS Safety Report 7745847-9 (Version None)
Quarter: 2011Q3

REPORT INFORMATION
  Report Type: 
  Country: None (occurrence: None)
  Receive Date: 20110913
  Receipt Date: 20110909
  Transmission Date: 20111222
  Serious: Yes (Life-Threatening)
  Sender: FDA-Public Use
  Company Number: VE-ABBOTT-11P-178-0853174-00

PATIENT
  Sex: Female
  Weight: 80 kg

DRUGS (2)
  1. HUMIRA [Suspect]
     Indication: PSORIATIC ARTHROPATHY
     Route: 058
     Dates: start: 20090422, end: 20100801
  2. HUMIRA [Suspect]
     Route: 058
     Dates: end: 20110802

REACTIONS (1)
  - TUBERCULIN TEST POSITIVE [None]
